FAERS Safety Report 10435143 (Version 1)
Quarter: 2014Q3

REPORT INFORMATION
  Report Type: Spontaneous
  Country: US (occurrence: None)
  Receive Date: 20140821
  Receipt Date: 20140821
  Transmission Date: 20150326
  Serious: No
  Sender: FDA-Public Use
  Company Number: CC14-1144

PATIENT
  Age: 71 Year
  Sex: Female
  Weight: 54.43 kg

DRUGS (2)
  1. ACTIFED [Concomitant]
     Active Substance: PSEUDOEPHEDRINE HYDROCHLORIDE\TRIPROLIDINE HYDROCHLORIDE
  2. MOMETASONE FUROATE CREAM USP 0.1% [Suspect]
     Active Substance: MOMETASONE FUROATE
     Indication: SKIN BURNING SENSATION
     Dates: start: 20140708, end: 20140708

REACTIONS (3)
  - Drug ineffective [None]
  - Off label use [None]
  - Condition aggravated [None]

NARRATIVE: CASE EVENT DATE: 20140708
